FAERS Safety Report 6170094-4 (Version None)
Quarter: 2009Q2

REPORT INFORMATION
  Report Type: 
  Country: None (occurrence: None)
  Receive Date: 20090428
  Receipt Date: 20090423
  Transmission Date: 20091009
  Serious: Yes (Other)
  Sender: FDA-Public Use
  Company Number: B0563982A

PATIENT
  Sex: Female

DRUGS (4)
  1. LAMICTAL [Suspect]
     Indication: EPILEPSY
     Route: 048
     Dates: start: 20090114
  2. TEGRETOL [Concomitant]
     Indication: EPILEPSY
     Route: 048
  3. PHENOBARBITAL TAB [Concomitant]
     Indication: EPILEPSY
     Route: 048
  4. GABAPENTIN [Concomitant]
     Indication: EPILEPSY
     Route: 048

REACTIONS (4)
  - EUSTACHIAN TUBE DYSFUNCTION [None]
  - HEARING IMPAIRED [None]
  - MIXED DEAFNESS [None]
  - TYMPANIC MEMBRANE DISORDER [None]
